FAERS Safety Report 12006965 (Version 1)
Quarter: 2016Q1

REPORT INFORMATION
  Report Type: Report from Study
  Country: BR (occurrence: BR)
  Receive Date: 20160205
  Receipt Date: 20160205
  Transmission Date: 20160526
  Serious: Yes (Hospitalization, Other)
  Sender: FDA-Public Use
  Company Number: BR-ALEXION PHARMACEUTICALS INC-A201600647

PATIENT
  Age: 20 Year
  Sex: Female

DRUGS (2)
  1. SOLIRIS [Suspect]
     Active Substance: ECULIZUMAB
     Dosage: 1200 MG, Q2W
     Route: 042
  2. SOLIRIS [Suspect]
     Active Substance: ECULIZUMAB
     Indication: HAEMOLYTIC URAEMIC SYNDROME
     Dosage: UNK UNK, QW
     Route: 042

REACTIONS (6)
  - Coma [Unknown]
  - Platelet count abnormal [Recovered/Resolved]
  - Seizure [Recovered/Resolved]
  - Lung infection [Unknown]
  - Cerebrovascular accident [Recovered/Resolved]
  - Fibromyalgia [Recovered/Resolved]
